FAERS Safety Report 18993398 (Version 1)
Quarter: 2021Q1

REPORT INFORMATION
  Report Type: Report from Study
  Country: None (occurrence: US)
  Receive Date: 20210310
  Receipt Date: 20210310
  Transmission Date: 20210420
  Serious: Yes (Death)
  Sender: FDA-Public Use
  Company Number: US-ABBVIE-21K-163-3807343-00

PATIENT
  Age: 83 Year
  Sex: Female

DRUGS (5)
  1. CYANOCOBALAMIN. [Concomitant]
     Active Substance: CYANOCOBALAMIN
     Indication: PRODUCT USED FOR UNKNOWN INDICATION
  2. VENCLEXTA [Suspect]
     Active Substance: VENETOCLAX
     Dosage: TWO TABLETS ONE TIME DAILY FOR 1 DAY
     Route: 048
     Dates: start: 20210217, end: 20210217
  3. VENCLEXTA [Suspect]
     Active Substance: VENETOCLAX
     Indication: ACUTE MYELOID LEUKAEMIA
     Dosage: ONE TABLET ONE TIME DAILY FOR 1 DAY
     Route: 048
     Dates: start: 20210216, end: 20210216
  4. VENCLEXTA [Suspect]
     Active Substance: VENETOCLAX
     Dosage: THREE TABLETS ONE TIME DAILY THEREAFTER
     Route: 048
     Dates: start: 20210218, end: 20210218
  5. ELIQUIS [Concomitant]
     Active Substance: APIXABAN
     Indication: PRODUCT USED FOR UNKNOWN INDICATION

REACTIONS (1)
  - Death [Fatal]

NARRATIVE: CASE EVENT DATE: 20210305
